FAERS Safety Report 11195512 (Version 1)
Quarter: 2015Q2

REPORT INFORMATION
  Report Type: Spontaneous
  Country: JP (occurrence: JP)
  Receive Date: 20150617
  Receipt Date: 20150617
  Transmission Date: 20150821
  Serious: Yes (Death)
  Sender: FDA-Public Use
  Company Number: JP-MALLINCKRODT-T201503041

PATIENT
  Age: 48 Year
  Sex: Male
  Weight: 63 kg

DRUGS (16)
  1. RINDERON V [Concomitant]
     Active Substance: BETAMETHASONE VALERATE
     Dosage: 2 MG
     Route: 048
     Dates: start: 20150318, end: 20150430
  2. LANSOPRAZOLE. [Concomitant]
     Active Substance: LANSOPRAZOLE
     Dosage: 15 MG
     Route: 048
     Dates: start: 20150228, end: 20150430
  3. METHADONE [Suspect]
     Active Substance: METHADONE HYDROCHLORIDE
     Indication: CANCER PAIN
     Dosage: 5 MG (15 MG DAILY DOSE)
     Route: 048
     Dates: start: 20150302, end: 20150309
  4. OXYFAST [Concomitant]
     Active Substance: OXYCODONE
     Dosage: 20 MG
     Route: 051
     Dates: start: 20150310, end: 20150314
  5. GABALON [Concomitant]
     Active Substance: BACLOFEN
     Dosage: 5 MG
     Route: 048
     Dates: start: 20150228, end: 20150318
  6. OXYFAST [Concomitant]
     Active Substance: OXYCODONE
     Dosage: 100 MG
     Route: 051
     Dates: start: 20150430, end: 20150503
  7. RINDERON V [Concomitant]
     Active Substance: BETAMETHASONE VALERATE
     Dosage: 2 MG
     Route: 051
     Dates: start: 20150224, end: 20150317
  8. METHADONE [Suspect]
     Active Substance: METHADONE HYDROCHLORIDE
     Dosage: 10 MG (20 MG DAILY DOSE)
     Route: 048
     Dates: start: 20150310, end: 20150430
  9. OXYFAST [Concomitant]
     Active Substance: OXYCODONE
     Dosage: 2.5 MG, P.R.N.
     Route: 051
     Dates: start: 20150301
  10. OXYFAST [Concomitant]
     Active Substance: OXYCODONE
     Dosage: 30 MG
     Route: 051
     Dates: start: 20150222, end: 20150309
  11. AMLODIPINE [Concomitant]
     Active Substance: AMLODIPINE BESYLATE
     Dosage: 5 MG
     Route: 048
     Dates: start: 20150228, end: 20150430
  12. RINDERON V [Concomitant]
     Active Substance: BETAMETHASONE VALERATE
     Dosage: 8 MG
     Route: 051
     Dates: start: 20150501, end: 20150503
  13. FEXOFENADINE HYDROCHLORIDE. [Concomitant]
     Active Substance: FEXOFENADINE HYDROCHLORIDE
     Dosage: 120 MG
     Route: 048
     Dates: start: 20150304, end: 20150430
  14. ZYPREXA [Concomitant]
     Active Substance: OLANZAPINE
     Dosage: 2.5 MG
     Route: 048
     Dates: start: 20150315, end: 20150430
  15. LANDSEN [Concomitant]
     Active Substance: CLONAZEPAM
     Dosage: 0.5 MG
     Route: 048
     Dates: start: 20150224, end: 20150430
  16. NAIXAN [Concomitant]
     Active Substance: NAPROXEN SODIUM
     Dosage: 300 MG
     Route: 048
     Dates: start: 20150228, end: 20150430

REACTIONS (1)
  - Rectal cancer [Fatal]

NARRATIVE: CASE EVENT DATE: 20150503
